FAERS Safety Report 9933797 (Version 2)
Quarter: 2014Q1

REPORT INFORMATION
  Report Type: Report from Study
  Country: US (occurrence: US)
  Receive Date: 20140228
  Receipt Date: 20140228
  Transmission Date: 20141002
  Serious: No
  Sender: FDA-Public Use
  Company Number: US-MYLANLABS-2013S1014757

PATIENT
  Age: 21 Year
  Sex: Female
  Weight: 68.04 kg

DRUGS (3)
  1. AMNESTEEM CAPSULES [Suspect]
     Indication: ACNE
     Dates: start: 20130227, end: 20130429
  2. AMNESTEEM CAPSULES [Suspect]
     Indication: ACNE
     Dates: start: 20130429, end: 20130707
  3. AMNESTEEM CAPSULES [Suspect]
     Indication: ACNE
     Dates: start: 20130429, end: 20130707

REACTIONS (4)
  - Drug ineffective [Recovered/Resolved]
  - Acne [Recovered/Resolved]
  - Dry skin [Recovered/Resolved]
  - Lip dry [Recovered/Resolved]
